FAERS Safety Report 25818612 (Version 4)
Quarter: 2025Q4

REPORT INFORMATION
  Report Type: Report from Study
  Country: US (occurrence: US)
  Receive Date: 20250918
  Receipt Date: 20251024
  Transmission Date: 20260117
  Serious: Yes (Hospitalization, Disabling, Other)
  Sender: EMD SERONO INC
  Company Number: US-Merck Healthcare KGaA-2025046296

PATIENT
  Age: 63 Year
  Sex: Male

DRUGS (4)
  1. MAVENCLAD [Suspect]
     Active Substance: CLADRIBINE
     Indication: Multiple sclerosis
     Dosage: YEAR ONE THERAPY
  2. MAVENCLAD [Suspect]
     Active Substance: CLADRIBINE
     Dosage: SECOND YEAR SECOND DOSE THERAPY
  3. MAVENCLAD [Suspect]
     Active Substance: CLADRIBINE
     Dosage: SECOND YEAR FIRST DOSE THERAPY
  4. DECADRON [Concomitant]
     Active Substance: DEXAMETHASONE
     Indication: Peripheral swelling

REACTIONS (15)
  - Loss of consciousness [Recovering/Resolving]
  - Myelocyte count increased [Unknown]
  - Multiple sclerosis relapse [Not Recovered/Not Resolved]
  - Serum ferritin increased [Unknown]
  - Platelet count decreased [Unknown]
  - White blood cell count abnormal [Unknown]
  - Red cell distribution width increased [Unknown]
  - Weight decreased [Unknown]
  - White blood cells urine positive [Unknown]
  - Platelet aggregation increased [Unknown]
  - Lymphopenia [Recovering/Resolving]
  - Glassy eyes [Unknown]
  - Pollakiuria [Unknown]
  - Body temperature decreased [Unknown]
  - Contraindicated product prescribed [Unknown]

NARRATIVE: CASE EVENT DATE: 20250527
